FAERS Safety Report 10010786 (Version 1)
Quarter: 2014Q1

REPORT INFORMATION
  Report Type: Spontaneous
  Country: US (occurrence: US)
  Receive Date: 20140314
  Receipt Date: 20140314
  Transmission Date: 20141002
  Serious: No
  Sender: FDA-Public Use
  Company Number: US-DRREDDYS-USA/USA/13/0028811

PATIENT
  Age: 69 Year
  Sex: Male
  Weight: 90.8 kg

DRUGS (1)
  1. CETIRIZINE 10 MG [Suspect]
     Indication: RHINITIS ALLERGIC
     Route: 048
     Dates: start: 20130321

REACTIONS (2)
  - Drug ineffective [Unknown]
  - Product quality issue [Unknown]
